FAERS Safety Report 4876339-2 (Version None)
Quarter: 2005Q4

REPORT INFORMATION
  Report Type: 
  Country: None (occurrence: None)
  Receive Date: 20051206
  Receipt Date: 20050804
  Transmission Date: 20060501
  Serious: No
  Sender: FDA-Public Use
  Company Number: USA0508104639

PATIENT
  Age: 55 Year
  Sex: Female

DRUGS (3)
  1. CYMBALTA [Suspect]
     Indication: DEPRESSION
     Dosage: 60 MG
  2. ESTROGEN [Concomitant]
  3. PROGESTERONE [Concomitant]

REACTIONS (2)
  - AGITATION [None]
  - SUICIDAL IDEATION [None]
